FAERS Safety Report 12336638 (Version 1)
Quarter: 2016Q2

REPORT INFORMATION
  Report Type: Spontaneous
  Country: GB (occurrence: GB)
  Receive Date: 20160505
  Receipt Date: 20160505
  Transmission Date: 20160815
  Serious: Yes (Life-Threatening, Hospitalization, Disabling, Other)
  Sender: FDA-Public Use
  Company Number: GB-NOVOPROD-490006

PATIENT
  Age: 56 Year
  Sex: Male
  Weight: 212 kg

DRUGS (6)
  1. PARACETAMOL [Concomitant]
     Active Substance: ACETAMINOPHEN
  2. TEMGESIC [Concomitant]
     Active Substance: BUPRENORPHINE HYDROCHLORIDE
     Indication: PAIN
  3. INSULIN PORK [Suspect]
     Active Substance: INSULIN PORK\INSULIN PURIFIED PORK
     Dosage: UNK
     Route: 051
  4. CODEINE [Concomitant]
     Active Substance: CODEINE
  5. INSULATARD HUMAN [Suspect]
     Active Substance: INSULIN HUMAN
     Indication: PRODUCT USED FOR UNKNOWN INDICATION
     Dosage: UNK
     Route: 051
  6. ATENOLOL. [Concomitant]
     Active Substance: ATENOLOL

REACTIONS (9)
  - Brain oedema [Unknown]
  - Blood insulin abnormal [Unknown]
  - Sensory disturbance [Unknown]
  - Visual acuity reduced [Unknown]
  - Pain [Unknown]
  - Memory impairment [Unknown]
  - Seizure [Unknown]
  - Gastrointestinal disorder [Unknown]
  - Anaphylactic shock [Not Recovered/Not Resolved]

NARRATIVE: CASE EVENT DATE: 19980930
